FAERS Safety Report 10912857 (Version 8)
Quarter: 2019Q3

REPORT INFORMATION
  Report Type: Spontaneous
  Country: US (occurrence: US)
  Receive Date: 20150313
  Receipt Date: 20190822
  Transmission Date: 20191004
  Serious: Yes (Other)
  Sender: FDA-Public Use
  Company Number: US-PFIZER INC-2015086999

PATIENT
  Age: 63 Year
  Sex: Male
  Weight: 120.18 kg

DRUGS (18)
  1. REGLAN [Concomitant]
     Active Substance: METOCLOPRAMIDE HYDROCHLORIDE
     Dosage: 10 MG, DAILY
  2. NAPROXEN. [Concomitant]
     Active Substance: NAPROXEN
     Dosage: 500 MG, AS NEEDED (EVERY 12 HOURS)
  3. OXYCODONE [Concomitant]
     Active Substance: OXYCODONE
     Indication: PAIN
     Dosage: 15MG, EVERY EIGHT HOURS, AS NEEDED
  4. METHADONE [Concomitant]
     Active Substance: METHADONE HYDROCHLORIDE
     Dosage: 10 MG, 3X/DAY
  5. SYNTHROID [Concomitant]
     Active Substance: LEVOTHYROXINE SODIUM
     Dosage: 75 UG, 1X/DAY
     Route: 048
  6. PROTONIX [Concomitant]
     Active Substance: PANTOPRAZOLE SODIUM
     Dosage: 40 MG, 1X/DAY
  7. METHADONE [Concomitant]
     Active Substance: METHADONE HYDROCHLORIDE
     Dosage: 20 MG, 4X/DAY (10 MG TABLET, TWO TABLETS, FOUR TIMES DAILY)
  8. REGLAN [Concomitant]
     Active Substance: METOCLOPRAMIDE HYDROCHLORIDE
     Dosage: 10 MG, DAILY
  9. ADVAIR HFA [Concomitant]
     Active Substance: FLUTICASONE PROPIONATE\SALMETEROL XINAFOATE
     Dosage: 250 UG, 2X/DAY
  10. ZETIA [Concomitant]
     Active Substance: EZETIMIBE
     Dosage: 10 MG, 1X/DAY
     Route: 048
  11. TESTOSTERONE CIPIONATE [Concomitant]
     Active Substance: TESTOSTERONE
     Dosage: 200 MG, EVERY 3 WEEKS
     Route: 030
  12. VIAGRA [Suspect]
     Active Substance: SILDENAFIL CITRATE
     Indication: ERECTILE DYSFUNCTION
     Dosage: 100 MG, AS NEEDED (1/2-1 TAB 1 HR PRE COITUS)
     Route: 048
     Dates: start: 2013
  13. KLOR-CON [Concomitant]
     Active Substance: POTASSIUM CHLORIDE
     Dosage: 40 MEQ, 1X/DAY (20 MEQ TABLET, TWO TABLETS ONCE DAILY)
     Route: 048
  14. DEMADEX [Concomitant]
     Active Substance: TORSEMIDE
     Dosage: 100 MG, 1X/DAY
  15. VALIUM [Concomitant]
     Active Substance: DIAZEPAM
     Dosage: 10 MG, AS NEEDED (TWICE DAILY)
     Route: 048
  16. LORATADINE. [Concomitant]
     Active Substance: LORATADINE
     Dosage: 10 MG, 1X/DAY
  17. XANAX [Concomitant]
     Active Substance: ALPRAZOLAM
     Dosage: 1 MG, 4X/DAY
     Route: 048
  18. MIRALAX [Concomitant]
     Active Substance: POLYETHYLENE GLYCOL 3350
     Indication: CONSTIPATION
     Dosage: 17 G, DAILY (AS NEEDED)

REACTIONS (2)
  - Road traffic accident [Unknown]
  - Spinal fracture [Unknown]

NARRATIVE: CASE EVENT DATE: 20140608
